FAERS Safety Report 15201978 (Version 1)
Quarter: 2018Q3

REPORT INFORMATION
  Report Type: Report from Study
  Country: BR (occurrence: BR)
  Receive Date: 20180726
  Receipt Date: 20180726
  Transmission Date: 20181010
  Serious: Yes (Disabling)
  Sender: FDA-Public Use
  Company Number: BR-IPSEN BIOPHARMACEUTICALS, INC.-2016-04343

PATIENT
  Age: 42 Year
  Sex: Male
  Weight: 52 kg

DRUGS (6)
  1. DYSPORT [Suspect]
     Active Substance: ABOBOTULINUMTOXINA
     Indication: TORTICOLLIS
     Dosage: 500 UNITS
     Route: 030
     Dates: start: 20140711, end: 20140711
  2. DYSPORT [Suspect]
     Active Substance: ABOBOTULINUMTOXINA
     Dosage: 500 UNITS
     Route: 030
     Dates: start: 20150130, end: 20150130
  3. DYSPORT [Suspect]
     Active Substance: ABOBOTULINUMTOXINA
     Dosage: 500 UNITS
     Route: 030
     Dates: start: 20150821, end: 20150821
  4. DYSPORT [Suspect]
     Active Substance: ABOBOTULINUMTOXINA
     Dosage: 600 UNITS
     Route: 030
     Dates: start: 20151127, end: 20151127
  5. DYSPORT [Suspect]
     Active Substance: ABOBOTULINUMTOXINA
     Indication: TORTICOLLIS
     Dosage: 600 UNITS
     Route: 030
     Dates: start: 20170317, end: 20170317
  6. DYSPORT [Suspect]
     Active Substance: ABOBOTULINUMTOXINA
     Dosage: 500 UNITS
     Route: 030
     Dates: start: 20150508, end: 20150508

REACTIONS (2)
  - Dysphagia [Recovered/Resolved]
  - Weight decreased [Unknown]

NARRATIVE: CASE EVENT DATE: 2015
